FAERS Safety Report 15646791 (Version 1)
Quarter: 2018Q4

REPORT INFORMATION
  Report Type: Spontaneous
  Country: US (occurrence: US)
  Receive Date: 20181122
  Receipt Date: 20181122
  Transmission Date: 20190205
  Serious: No
  Sender: FDA-Public Use
  Company Number: US-ASTRAZENECA-2018SF42095

PATIENT
  Age: 50 Year
  Sex: Female
  Weight: 65.8 kg

DRUGS (4)
  1. PULMICORT FLEXHALER [Suspect]
     Active Substance: BUDESONIDE
     Indication: COUGH
     Dosage: 180 MCG, ONE INHALATION, ONCE A DAY
     Route: 055
     Dates: start: 20181011
  2. PULMICORT FLEXHALER [Suspect]
     Active Substance: BUDESONIDE
     Indication: WHEEZING
     Dosage: 180 MCG, ONE INHALATION, ONCE A DAY
     Route: 055
     Dates: start: 20181011
  3. PULMICORT FLEXHALER [Suspect]
     Active Substance: BUDESONIDE
     Indication: PNEUMONIA
     Dosage: 180 MCG, ONE INHALATION, ONCE A DAY
     Route: 055
     Dates: start: 20181011
  4. PULMICORT FLEXHALER [Suspect]
     Active Substance: BUDESONIDE
     Indication: BRONCHITIS
     Dosage: 180 MCG, ONE INHALATION, ONCE A DAY
     Route: 055
     Dates: start: 20181011

REACTIONS (6)
  - Underdose [Unknown]
  - Wrong technique in device usage process [Unknown]
  - Product use issue [Unknown]
  - Pleurisy [Unknown]
  - Off label use [Unknown]
  - Product prescribing error [Unknown]

NARRATIVE: CASE EVENT DATE: 201810
